FAERS Safety Report 4747740-2 (Version None)
Quarter: 2005Q3

REPORT INFORMATION
  Report Type: 
  Country: None (occurrence: None)
  Receive Date: 20050817
  Receipt Date: 20050817
  Transmission Date: 20060218
  Serious: Yes (Hospitalization)
  Sender: FDA-Public Use
  Company Number: None

PATIENT
  Age: 85 Year
  Sex: Female

DRUGS (5)
  1. LEVAQUIN [Suspect]
     Indication: URINARY TRACT INFECTION
     Dosage: 250 DAILY ORAL
     Route: 048
     Dates: start: 20050113, end: 20050118
  2. COUMADIN [Concomitant]
  3. PREVACID [Concomitant]
  4. AMBIEN [Concomitant]
  5. BACLOFEN [Concomitant]

REACTIONS (1)
  - CONVULSION [None]
